FAERS Safety Report 18340890 (Version 34)
Quarter: 2025Q2

REPORT INFORMATION
  Report Type: Report from Study
  Country: US (occurrence: US)
  Receive Date: 20201003
  Receipt Date: 20250620
  Transmission Date: 20250717
  Serious: Yes (Hospitalization, Other)
  Sender: TAKEDA
  Company Number: US-SHIRE-US202032146

PATIENT
  Age: 64 Year
  Sex: Female
  Weight: 107 kg

DRUGS (33)
  1. HUMAN IMMUNOGLOBULIN G [Suspect]
     Active Substance: HUMAN IMMUNOGLOBULIN G
     Indication: Asthma
     Dosage: 50 GRAM, Q3WEEKS
  2. HUMAN IMMUNOGLOBULIN G [Suspect]
     Active Substance: HUMAN IMMUNOGLOBULIN G
     Indication: Immunodeficiency common variable
  3. DIPHENHYDRAMINE [Concomitant]
     Active Substance: DIPHENHYDRAMINE
     Indication: Product used for unknown indication
  4. ALBUTEROL SULFATE [Concomitant]
     Active Substance: ALBUTEROL SULFATE
  5. ATORVASTATIN CALCIUM [Concomitant]
     Active Substance: ATORVASTATIN CALCIUM
  6. EPINEPHRINE [Concomitant]
     Active Substance: EPINEPHRINE
     Indication: Product used for unknown indication
  7. SODIUM CHLORIDE [Concomitant]
     Active Substance: SODIUM CHLORIDE
     Indication: Product used for unknown indication
  8. FLUTICASONE PROPIONATE [Concomitant]
     Active Substance: FLUTICASONE PROPIONATE
  9. LEVOTHYROXINE SODIUM [Concomitant]
     Active Substance: LEVOTHYROXINE SODIUM
  10. MYRBETRIQ [Concomitant]
     Active Substance: MIRABEGRON
     Indication: Product used for unknown indication
  11. PREDNISONE [Concomitant]
     Active Substance: PREDNISONE
  12. TYLENOL EXTRA STRENGTH [Concomitant]
     Active Substance: ACETAMINOPHEN
  13. SINGULAIR [Concomitant]
     Active Substance: MONTELUKAST SODIUM
  14. OMEPRAZOLE [Concomitant]
     Active Substance: OMEPRAZOLE
  15. CLARITIN-D NOS [Concomitant]
     Active Substance: LORATADINE\PSEUDOEPHEDRINE SULFATE
  16. ASPIRIN [Concomitant]
     Active Substance: ASPIRIN
  17. LINZESS [Concomitant]
     Active Substance: LINACLOTIDE
  18. DICLOFENAC EPOLAMINE [Concomitant]
     Active Substance: DICLOFENAC EPOLAMINE
  19. VITAMIN C [Concomitant]
     Active Substance: ASCORBIC ACID
  20. VITAMIN D3 [Concomitant]
     Active Substance: CHOLECALCIFEROL
  21. NAPROXEN [Concomitant]
     Active Substance: NAPROXEN
  22. ENALAPRIL MALEATE [Concomitant]
     Active Substance: ENALAPRIL MALEATE
  23. WIXELA INHUB [Concomitant]
     Active Substance: FLUTICASONE PROPIONATE\SALMETEROL XINAFOATE
  24. SOLIFENACIN [Concomitant]
     Active Substance: SOLIFENACIN
  25. FLONASE [Concomitant]
     Active Substance: FLUTICASONE PROPIONATE
  26. ADVAIR HFA [Concomitant]
     Active Substance: FLUTICASONE PROPIONATE\SALMETEROL XINAFOATE
  27. ACETAMINOPHEN\HYDROCODONE [Concomitant]
     Active Substance: ACETAMINOPHEN\HYDROCODONE
  28. NUCALA [Concomitant]
     Active Substance: MEPOLIZUMAB
  29. CIPROFLOXACIN HYDROCHLORIDE [Concomitant]
     Active Substance: CIPROFLOXACIN HYDROCHLORIDE
  30. PROAIR HFA [Concomitant]
     Active Substance: ALBUTEROL SULFATE
  31. DIPHENHYDRAMINE HYDROCHLORIDE [Concomitant]
     Active Substance: DIPHENHYDRAMINE HYDROCHLORIDE
  32. FERROUS SULFATE [Concomitant]
     Active Substance: FERROUS SULFATE
  33. NEOMYCIN\POLYMYXIN [Concomitant]
     Active Substance: NEOMYCIN\POLYMYXIN

REACTIONS (31)
  - Pneumonia [Unknown]
  - Bladder disorder [Unknown]
  - Asthma [Unknown]
  - Muscle strain [Unknown]
  - Ear infection [Unknown]
  - Dysphonia [Unknown]
  - Seasonal allergy [Unknown]
  - Weight increased [Unknown]
  - Body height decreased [Unknown]
  - Lung disorder [Unknown]
  - Back injury [Unknown]
  - Muscle discomfort [Unknown]
  - Multiple allergies [Unknown]
  - COVID-19 [Unknown]
  - Full blood count decreased [Unknown]
  - Brain fog [Unknown]
  - Sensitivity to weather change [Unknown]
  - Off label use [Unknown]
  - Inappropriate schedule of product administration [Unknown]
  - Product dose omission issue [Unknown]
  - Aphonia [Unknown]
  - Injury associated with device [Unknown]
  - Multiple allergies [Unknown]
  - Sinusitis [Recovering/Resolving]
  - Rhinorrhoea [Unknown]
  - Influenza like illness [Unknown]
  - Erythema [Unknown]
  - Back pain [Unknown]
  - Infusion site pain [Unknown]
  - Dizziness [Unknown]
  - Fatigue [Unknown]

NARRATIVE: CASE EVENT DATE: 20130506
